FAERS Safety Report 19115668 (Version 4)
Quarter: 2021Q2

REPORT INFORMATION
  Report Type: Report from Study
  Country: None (occurrence: CA)
  Receive Date: 20210409
  Receipt Date: 20210612
  Transmission Date: 20210717
  Serious: Yes (Hospitalization)
  Sender: FDA-Public Use
  Company Number: CA-ABBVIE-21K-028-3849703-00

PATIENT
  Sex: Female

DRUGS (1)
  1. HUMIRA [Suspect]
     Active Substance: ADALIMUMAB
     Indication: HIDRADENITIS
     Route: 058
     Dates: start: 20200629, end: 20210308

REACTIONS (3)
  - Respiratory failure [Not Recovered/Not Resolved]
  - Candida infection [Unknown]
  - Pneumonia staphylococcal [Unknown]

NARRATIVE: CASE EVENT DATE: 2021
